FAERS Safety Report 10200743 (Version 1)
Quarter: 2014Q2

REPORT INFORMATION
  Report Type: Spontaneous
  Country: US (occurrence: None)
  Receive Date: 20140523
  Receipt Date: 20140523
  Transmission Date: 20141212
  Serious: Yes (Hospitalization)
  Sender: FDA-Public Use
  Company Number: None

PATIENT
  Age: 24 Year
  Sex: Female

DRUGS (1)
  1. IMPLANON [Suspect]
     Indication: CONTRACEPTION
     Dosage: ONCE?GIVEN INTO/UNDER THE SKIN
     Dates: start: 20130621, end: 20140521

REACTIONS (9)
  - Hypokalaemia [None]
  - Hypovolaemia [None]
  - Mood swings [None]
  - Anxiety [None]
  - Dysmenorrhoea [None]
  - Uterine spasm [None]
  - Myalgia [None]
  - Menorrhagia [None]
  - Menorrhagia [None]
